FAERS Safety Report 16911481 (Version 1)
Quarter: 2019Q4

REPORT INFORMATION
  Report Type: Spontaneous
  Country: US (occurrence: US)
  Receive Date: 20191013
  Receipt Date: 20191013
  Transmission Date: 20200122
  Serious: No
  Sender: FDA-Public Use
  Company Number: US-C B FLEET CO INC-201808-US-001960

PATIENT
  Sex: Female

DRUGS (1)
  1. MONISTAT 1 COMBINATION PACK TRIPLE ACTION [Suspect]
     Active Substance: MICONAZOLE NITRATE
     Indication: FUNGAL INFECTION
     Dosage: DOSAGE UNKNOWN
     Route: 067

REACTIONS (5)
  - Condition aggravated [Unknown]
  - Vulvovaginal pruritus [Unknown]
  - Drug ineffective [Unknown]
  - Vulvovaginal burning sensation [Unknown]
  - Hypersensitivity [Unknown]
